FAERS Safety Report 18384102 (Version 1)
Quarter: 2020Q4

REPORT INFORMATION
  Report Type: Report from Study
  Country: None (occurrence: US)
  Receive Date: 20201015
  Receipt Date: 20201015
  Transmission Date: 20210114
  Serious: Yes (Hospitalization, Other)
  Sender: FDA-Public Use
  Company Number: US-ABBVIE-20K-163-3436066-00

PATIENT
  Age: 89 Year
  Sex: Male
  Weight: 82.63 kg

DRUGS (8)
  1. VENCLEXTA [Suspect]
     Active Substance: VENETOCLAX
     Dosage: ON DAY 2
     Route: 048
     Dates: start: 201909, end: 2019
  2. VENCLEXTA [Suspect]
     Active Substance: VENETOCLAX
     Dosage: 4 TABLET ON DAY 4 AND DAILY AFTER
     Route: 048
     Dates: start: 201909, end: 20200917
  3. VENCLEXTA [Suspect]
     Active Substance: VENETOCLAX
     Indication: ACUTE MYELOID LEUKAEMIA
     Dosage: 1 TABLET, DAY 1
     Route: 048
     Dates: start: 201909, end: 2019
  4. ALLOPURINOL. [Concomitant]
     Active Substance: ALLOPURINOL
     Indication: PRODUCT USED FOR UNKNOWN INDICATION
  5. VENCLEXTA [Suspect]
     Active Substance: VENETOCLAX
     Dosage: ON DAY 3
     Route: 048
     Dates: start: 201909, end: 2019
  6. VENCLEXTA [Suspect]
     Active Substance: VENETOCLAX
     Route: 048
     Dates: start: 20200918, end: 2020
  7. DICLOFENAC [Concomitant]
     Active Substance: DICLOFENAC
     Indication: PRODUCT USED FOR UNKNOWN INDICATION
  8. ACYCLOVIR. [Concomitant]
     Active Substance: ACYCLOVIR
     Indication: PRODUCT USED FOR UNKNOWN INDICATION

REACTIONS (6)
  - Platelet count decreased [Unknown]
  - Headache [Unknown]
  - Diplopia [Unknown]
  - White blood cell count decreased [Unknown]
  - Seizure [Unknown]
  - Fall [Unknown]

NARRATIVE: CASE EVENT DATE: 202005
